FAERS Safety Report 7050410-1 (Version None)
Quarter: 2010Q4

REPORT INFORMATION
  Report Type: 
  Country: None (occurrence: None)
  Receive Date: 20101012
  Receipt Date: 20100928
  Transmission Date: 20110411
  Serious: Yes (Death)
  Sender: FDA-Public Use
  Company Number: 2010US000057

PATIENT
  Age: 80 Year
  Sex: Female

DRUGS (1)
  1. ENTEREG [Suspect]
     Indication: POSTOPERATIVE ILEUS
     Dosage: 12 MG;BID;PO
     Route: 048
     Dates: start: 20100807, end: 20100809

REACTIONS (2)
  - CARDIO-RESPIRATORY ARREST [None]
  - LOSS OF CONSCIOUSNESS [None]
